FAERS Safety Report 5915778-5 (Version None)
Quarter: 2008Q4

REPORT INFORMATION
  Report Type: 
  Country: None (occurrence: None)
  Receive Date: 20081010
  Receipt Date: 20081008
  Transmission Date: 20090506
  Serious: No
  Sender: FDA-Public Use
  Company Number: US-B.I. PHARMACEUTICALS,INC./RIDGEFIELD-2008-BP-15489BP

PATIENT
  Sex: Male

DRUGS (2)
  1. ZANTAC 150 [Suspect]
     Indication: ULCER
     Dosage: 150MG
     Route: 048
     Dates: start: 20080801
  2. CARAFATE [Suspect]
     Indication: ULCER
     Dates: start: 20080801

REACTIONS (1)
  - ALOPECIA [None]
